FAERS Safety Report 14760380 (Version 2)
Quarter: 2018Q2

REPORT INFORMATION
  Report Type: Other
  Country: IT (occurrence: IT)
  Receive Date: 20180414
  Receipt Date: 20180614
  Transmission Date: 20180711
  Serious: Yes (Hospitalization, Other)
  Sender: FDA-Public Use
  Company Number: IT-MACLEODS PHARMACEUTICALS US LTD-MAC2018012584

PATIENT

DRUGS (4)
  1. LEXOTAN [Suspect]
     Active Substance: BROMAZEPAM
     Indication: SUICIDE ATTEMPT
     Dosage: 20 ML, UNK, 2,5 MG/ML ORAL DROPS SOLUTION, TOATAL
     Route: 048
     Dates: start: 20171226, end: 20171226
  2. LAMICTAL [Suspect]
     Active Substance: LAMOTRIGINE
     Indication: SUICIDE ATTEMPT
     Dosage: 1400 MG, UNK, 100 MG CHEWABLE / DISPERSIBLE TABLETS, TOATAL
     Route: 048
     Dates: start: 20171226, end: 20171226
  3. ESCITALOPRAM [Suspect]
     Active Substance: ESCITALOPRAM OXALATE
     Indication: SUICIDE ATTEMPT
     Dosage: 300 MG, UNK, TOATAL
     Route: 048
     Dates: start: 20171226, end: 20171226
  4. EFEXOR [Suspect]
     Active Substance: VENLAFAXINE HYDROCHLORIDE
     Indication: SUICIDE ATTEMPT
     Dosage: 7 DF, UNK, 37,5 MG PROLONGED-RELEASE HARD CAPSULES, TOATAL
     Route: 048
     Dates: start: 20171226, end: 20171226

REACTIONS (4)
  - Muscle rigidity [Recovered/Resolved]
  - Drug abuse [Recovered/Resolved]
  - Sopor [Recovered/Resolved]
  - Blood gases abnormal [Recovered/Resolved]

NARRATIVE: CASE EVENT DATE: 20171226
